FAERS Safety Report 7290281-1 (Version None)
Quarter: 2011Q1

REPORT INFORMATION
  Report Type: 
  Country: None (occurrence: None)
  Receive Date: 20110214
  Receipt Date: 20110202
  Transmission Date: 20110831
  Serious: Yes (Other)
  Sender: FDA-Public Use
  Company Number: JP-SANOFI-AVENTIS-2011SA008123

PATIENT
  Age: 85 Year
  Sex: Male

DRUGS (7)
  1. PERINDOPRIL ERBUMINE [Concomitant]
     Route: 048
  2. ATELEC [Concomitant]
     Route: 048
  3. MAGNESIUM OXIDE [Concomitant]
     Route: 048
  4. ROZEREM [Suspect]
     Indication: INSOMNIA
     Route: 048
     Dates: start: 20110105, end: 20110121
  5. YOKUKAN-SAN [Concomitant]
     Route: 048
  6. ASPIRIN [Concomitant]
     Route: 048
  7. ZOLPIDEM [Suspect]
     Indication: INSOMNIA
     Route: 048
     Dates: start: 20110105, end: 20110121

REACTIONS (1)
  - HYPOTHERMIA [None]
